FAERS Safety Report 11696468 (Version 1)
Quarter: 2015Q4

REPORT INFORMATION
  Report Type: Spontaneous
  Country: FR (occurrence: FR)
  Receive Date: 20151104
  Receipt Date: 20151104
  Transmission Date: 20160304
  Serious: Yes (Life-Threatening, Other)
  Sender: FDA-Public Use
  Company Number: FR-PFIZER INC-2015367286

PATIENT
  Age: 69 Year
  Sex: Male

DRUGS (14)
  1. RAMIPRIL. [Concomitant]
     Active Substance: RAMIPRIL
     Dosage: 5 MG, DAILY
  2. NEOMERCAZOLE [Concomitant]
     Active Substance: CARBIMAZOLE
     Dosage: UNK
     Dates: start: 20150917
  3. SIMDAX [Suspect]
     Active Substance: LEVOSIMENDAN
     Indication: RIGHT VENTRICULAR FAILURE
     Dosage: 0.1 ?G/KG/MIN
     Route: 042
     Dates: start: 20150914, end: 20150915
  4. NOVONORM [Concomitant]
     Active Substance: REPAGLINIDE
     Dosage: 3 MG, DAILY
  5. XELEVIA [Concomitant]
     Active Substance: SITAGLIPTIN PHOSPHATE
     Dosage: 50 MG, DAILY
  6. LYRICA [Concomitant]
     Active Substance: PREGABALIN
     Dosage: 25 MG, DAILY
  7. PROCORALAN [Concomitant]
     Active Substance: IVABRADINE
     Dosage: 10 MG, DAILY
     Dates: start: 201508
  8. FUROSEMIDE. [Concomitant]
     Active Substance: FUROSEMIDE
     Dosage: 40 MG, DAILY
  9. REVATIO [Suspect]
     Active Substance: SILDENAFIL CITRATE
     Indication: PULMONARY HYPERTENSION
     Dosage: 20 MG, 3X/DAY
     Route: 048
     Dates: start: 20150914, end: 20150922
  10. NEBIVOLOL HYDROCHLORIDE [Concomitant]
     Active Substance: NEBIVOLOL HYDROCHLORIDE
     Dosage: 7.5 MG, DAILY
  11. NEOMERCAZOLE [Concomitant]
     Active Substance: CARBIMAZOLE
     Dosage: 15 MG, DAILY
     Dates: end: 20150903
  12. ELIQUIS [Concomitant]
     Active Substance: APIXABAN
     Dosage: 10 MG, DAILY
  13. INSPRA [Concomitant]
     Active Substance: EPLERENONE
     Dosage: 25 MG, DAILY
  14. STAGID [Concomitant]
     Active Substance: METFORMIN PAMOATE
     Dosage: 700 MG, DAILY

REACTIONS (1)
  - Ventricular tachycardia [Recovered/Resolved]

NARRATIVE: CASE EVENT DATE: 20150915
